FAERS Safety Report 20527191 (Version 1)
Quarter: 2022Q1

REPORT INFORMATION
  Report Type: Spontaneous
  Country: RU (occurrence: RU)
  Receive Date: 20220228
  Receipt Date: 20220228
  Transmission Date: 20220423
  Serious: Yes (Hospitalization, Other)
  Sender: FDA-Public Use
  Company Number: RU-NOVARTISPH-NVSC2022RU034048

PATIENT
  Age: 62 Year
  Sex: Male

DRUGS (4)
  1. VILDAGLIPTIN [Suspect]
     Active Substance: VILDAGLIPTIN
     Indication: Suicide attempt
     Dosage: 50 MG, BID
     Route: 065
  2. VILDAGLIPTIN [Suspect]
     Active Substance: VILDAGLIPTIN
     Dosage: 140 DOSAGE FORM, QD (IN THE MORNING)
     Route: 065
     Dates: start: 20220130
  3. CAPTOPRIL [Suspect]
     Active Substance: CAPTOPRIL
     Indication: Suicide attempt
     Dosage: 39 DOSAGE FORM
     Route: 065
     Dates: start: 20220130
  4. CARDIOMAGNYL [Concomitant]
     Active Substance: ASPIRIN\MAGNESIUM HYDROXIDE
     Indication: Product used for unknown indication
     Dosage: UNK
     Route: 048

REACTIONS (10)
  - Suicide attempt [Unknown]
  - Extremity necrosis [Unknown]
  - Pyrexia [Unknown]
  - Hyperglycaemia [Recovered/Resolved]
  - Hypoaesthesia [Unknown]
  - Intentional product misuse [Unknown]
  - Blood pressure decreased [Unknown]
  - Pain in extremity [Unknown]
  - Hyperaemia [Unknown]
  - Cyanosis [Unknown]

NARRATIVE: CASE EVENT DATE: 20220130
